FAERS Safety Report 13732980 (Version 1)
Quarter: 2017Q3

REPORT INFORMATION
  Report Type: Spontaneous
  Country: US (occurrence: US)
  Receive Date: 20170707
  Receipt Date: 20170707
  Transmission Date: 20171127
  Serious: No
  Sender: FDA-Public Use
  Company Number: US-ROCHE-1031547

PATIENT
  Sex: Female

DRUGS (2)
  1. IVIG [Suspect]
     Active Substance: HUMAN IMMUNOGLOBULIN G
     Indication: MENINGOENCEPHALITIS HERPETIC
     Route: 042
  2. CYTOVENE IV [Suspect]
     Active Substance: GANCICLOVIR SODIUM
     Indication: MENINGOENCEPHALITIS HERPETIC
     Route: 042

REACTIONS (4)
  - Ill-defined disorder [Not Recovered/Not Resolved]
  - Dysphagia [Not Recovered/Not Resolved]
  - Feeding disorder [Not Recovered/Not Resolved]
  - Anaemia [Recovered/Resolved]
